FAERS Safety Report 19349657 (Version 1)
Quarter: 2021Q2

REPORT INFORMATION
  Report Type: Spontaneous
  Country: US (occurrence: US)
  Receive Date: 20210528
  Receipt Date: 20210528
  Transmission Date: 20210717
  Serious: Yes (Hospitalization)
  Sender: FDA-Public Use
  Company Number: None

PATIENT
  Age: 61 Year
  Sex: Male

DRUGS (20)
  1. NEUPOGEN [Suspect]
     Active Substance: FILGRASTIM
     Indication: ACUTE MYELOID LEUKAEMIA
     Dosage: OTHER DOSE:1 SYR;?
     Route: 058
     Dates: start: 20210330
  2. MULTIVITAMIN AUDLT [Concomitant]
  3. ZOFRAN [Concomitant]
     Active Substance: ONDANSETRON HYDROCHLORIDE
  4. FLUOXETINE [Concomitant]
     Active Substance: FLUOXETINE HYDROCHLORIDE
  5. LORAZEPAM. [Concomitant]
     Active Substance: LORAZEPAM
  6. PROCRIT [Concomitant]
     Active Substance: ERYTHROPOIETIN
  7. CORN OIL. [Concomitant]
     Active Substance: CORN OIL
  8. PREDNISONE. [Concomitant]
     Active Substance: PREDNISONE
  9. VITAMIN D3 [Concomitant]
     Active Substance: CHOLECALCIFEROL
  10. ZOLPIDEM [Concomitant]
     Active Substance: ZOLPIDEM TARTRATE
  11. PAROXETINE. [Concomitant]
     Active Substance: PAROXETINE
  12. TACROLIMUS. [Concomitant]
     Active Substance: TACROLIMUS
  13. ELIQUIS [Concomitant]
     Active Substance: APIXABAN
  14. FOLIC ACID. [Concomitant]
     Active Substance: FOLIC ACID
  15. OMEPRAZOLE. [Concomitant]
     Active Substance: OMEPRAZOLE
  16. OXYCODONE [Concomitant]
     Active Substance: OXYCODONE
  17. VITAMIN C [Concomitant]
     Active Substance: ASCORBIC ACID
  18. BACTRIM DS [Concomitant]
     Active Substance: SULFAMETHOXAZOLE\TRIMETHOPRIM
  19. COLACE CLEAR [Concomitant]
     Active Substance: DOCUSATE SODIUM
  20. VITAMIN B6 [Concomitant]
     Active Substance: PYRIDOXINE HYDROCHLORIDE

REACTIONS (1)
  - Stem cell transplant [None]

NARRATIVE: CASE EVENT DATE: 20210421
